FAERS Safety Report 9791813 (Version 1)
Quarter: 2014Q1

REPORT INFORMATION
  Report Type: Spontaneous
  Country: US (occurrence: US)
  Receive Date: 20140102
  Receipt Date: 20140102
  Transmission Date: 20141002
  Serious: Yes (Other)
  Sender: FDA-Public Use
  Company Number: US-TARO PHARMACEUTICALS U.S.A., INC-2013SUN05300

PATIENT
  Age: 56 Year
  Sex: Female
  Weight: 57 kg

DRUGS (12)
  1. WARFARIN [Suspect]
     Indication: DEEP VEIN THROMBOSIS
     Dosage: 5 MG, QD
     Route: 065
  2. WARFARIN [Interacting]
     Indication: PROPHYLAXIS
     Dosage: 2.5 MG, QD
     Route: 065
  3. WARFARIN [Interacting]
     Dosage: 3 MG, QD
     Route: 065
  4. BISMUTH SALICYLATE [Interacting]
     Indication: DIARRHOEA
     Dosage: 30 ML, EVERY 4 HOURS
     Route: 065
  5. ENOXAPARIN SODIUM [Concomitant]
     Dosage: 30 MG, BID
     Route: 058
  6. LOPERAMIDE [Concomitant]
     Indication: DIARRHOEA
     Dosage: 4 MG, QID
  7. DIPHENOXYLATE HYDROCHLORIDE/ATROPINE SULFATE [Concomitant]
     Indication: DIARRHOEA
     Dosage: 5 MG/0.05 MG EVERY 6 HOURS
  8. VITAMIN K [Concomitant]
     Dosage: 30 MCG/DAY TO 70 MCG/DAY
  9. MULTIVITAMIN [Concomitant]
     Dosage: 5 ML, OD
  10. VITAMIN D [Concomitant]
     Dosage: 50000 UNITS, WEEKLY
  11. PREDNISONE [Concomitant]
     Dosage: 10 MG, OD
  12. NEBULIZED IPRATROPIUM/ALBUTEROL [Concomitant]
     Dosage: EVERY 4 HOURS

REACTIONS (3)
  - Drug interaction [Recovered/Resolved]
  - International normalised ratio increased [Recovered/Resolved]
  - Post procedural haemorrhage [Recovered/Resolved]
